FAERS Safety Report 8574936-4 (Version None)
Quarter: 2012Q3

REPORT INFORMATION
  Report Type: 
  Country: None (occurrence: None)
  Receive Date: 20120807
  Receipt Date: 20120726
  Transmission Date: 20120928
  Serious: Yes (Hospitalization)
  Sender: FDA-Public Use
  Company Number: US-BAYER-2011-102119

PATIENT
  Age: 33 Year
  Sex: Female
  Weight: 61.224 kg

DRUGS (14)
  1. SENNA-MINT WAF [Concomitant]
  2. TYLENOL [Concomitant]
  3. BENADRYL [Concomitant]
  4. ACIPHEX [Concomitant]
     Dosage: UNK
     Dates: start: 20091102
  5. MULTI-VITAMIN [Concomitant]
     Dosage: UNK UNK, QD
  6. AMBIEN [Concomitant]
  7. DROSPIRENONE AND ETHINYL ESTRADIOL [Suspect]
     Indication: CONTRACEPTION
     Dosage: UNK
     Route: 048
     Dates: start: 20080701, end: 20091101
  8. YASMIN [Suspect]
     Indication: CONTRACEPTION
     Dosage: UNK
     Route: 048
     Dates: start: 20040101, end: 20091101
  9. COLACE [Concomitant]
  10. PRILOSEC [Concomitant]
  11. XANAX [Concomitant]
     Dosage: 0.5 MG, PRN
     Route: 048
     Dates: start: 20091023
  12. ANTIBIOTICS [Concomitant]
     Dosage: UNK
     Dates: start: 20091102
  13. ADVIL [Concomitant]
     Indication: PAIN
     Dosage: UNK UNK, PRN
     Route: 048
  14. YAZ [Suspect]
     Indication: CONTRACEPTION
     Dosage: UNK
     Dates: start: 20040101, end: 20080701

REACTIONS (8)
  - HEART RATE ABNORMAL [None]
  - DEEP VEIN THROMBOSIS [None]
  - OEDEMA PERIPHERAL [None]
  - HEART RATE INCREASED [None]
  - PAIN IN EXTREMITY [None]
  - HYPOAESTHESIA [None]
  - DYSPNOEA [None]
  - PULMONARY EMBOLISM [None]
